FAERS Safety Report 13283800 (Version 2)
Quarter: 2017Q1

REPORT INFORMATION
  Report Type: Spontaneous
  Country: US (occurrence: US)
  Receive Date: 20170301
  Receipt Date: 20170309
  Transmission Date: 20170428
  Serious: No
  Sender: FDA-Public Use
  Company Number: US-HORIZON-BUP-0018-2017

PATIENT
  Age: 2 Month
  Sex: Female

DRUGS (3)
  1. L-ARGININE [Concomitant]
     Active Substance: ARGININE
  2. CYCLINEX [Concomitant]
  3. BUPHENYL [Suspect]
     Active Substance: SODIUM PHENYLBUTYRATE
     Indication: ARGININOSUCCINATE LYASE DEFICIENCY
     Dosage: 3 G DAILY
     Dates: start: 20170214

REACTIONS (1)
  - Cough [Recovered/Resolved]

NARRATIVE: CASE EVENT DATE: 20170216
